FAERS Safety Report 8982879 (Version 2)
Quarter: 2013Q1

REPORT INFORMATION
  Report Type: Spontaneous
  Country: FR (occurrence: FR)
  Receive Date: 20121221
  Receipt Date: 20130227
  Transmission Date: 20140127
  Serious: Yes (Hospitalization)
  Sender: FDA-Public Use
  Company Number: FR-ROCHE-1164710

PATIENT
  Age: 57 Year
  Sex: Female
  Weight: 78 kg

DRUGS (5)
  1. ROACTEMRA [Suspect]
     Indication: RHEUMATOID ARTHRITIS
     Route: 042
     Dates: start: 20120209
  2. ROACTEMRA [Suspect]
     Route: 042
     Dates: start: 20121203
  3. METOJECT [Concomitant]
     Indication: RHEUMATOID ARTHRITIS
     Route: 030
  4. CORTANCYL [Concomitant]
     Indication: RHEUMATOID ARTHRITIS
     Route: 048
  5. BISOPROLOL [Concomitant]
     Indication: HYPERTENSION
     Route: 048

REACTIONS (1)
  - Eyelid ptosis [Unknown]
